FAERS Safety Report 25573827 (Version 2)
Quarter: 2025Q3

REPORT INFORMATION
  Report Type: Spontaneous
  Country: US (occurrence: US)
  Receive Date: 20250717
  Receipt Date: 20250728
  Transmission Date: 20251021
  Serious: Yes (Hospitalization)
  Sender: UROGEN PHARMA
  Company Number: US-UROGEN PHARMA LTD.-2025-UGN-000127

PATIENT

DRUGS (1)
  1. JELMYTO [Suspect]
     Active Substance: MITOMYCIN
     Indication: Transitional cell cancer of the renal pelvis and ureter
     Dosage: 15 MILLILITER (60MG), ONCE A WEEK (INSTILLATION)
     Dates: start: 20250709, end: 20250709

REACTIONS (1)
  - Subcapsular renal haematoma [Unknown]

NARRATIVE: CASE EVENT DATE: 20250710
